FAERS Safety Report 24813177 (Version 1)
Quarter: 2025Q1

REPORT INFORMATION
  Report Type: Spontaneous
  Country: IN (occurrence: IN)
  Receive Date: 20250107
  Receipt Date: 20250107
  Transmission Date: 20250408
  Serious: Yes (Other)
  Sender: TOLMAR
  Company Number: IN-TOLMAR, INC.-24IN055340

PATIENT
  Age: 65 Year
  Sex: Male

DRUGS (6)
  1. LEUPROLIDE ACETATE [Suspect]
     Active Substance: LEUPROLIDE ACETATE
     Indication: Prostate cancer metastatic
  2. GABAPENTIN [Concomitant]
     Active Substance: GABAPENTIN
     Indication: Prostate cancer metastatic
  3. TAPENTADOL [Concomitant]
     Active Substance: TAPENTADOL
     Indication: Prostate cancer metastatic
  4. DEXAMETHASONE [Concomitant]
     Active Substance: DEXAMETHASONE
     Indication: Prostate cancer metastatic
  5. BICALUTAMIDE [Concomitant]
     Active Substance: BICALUTAMIDE
     Indication: Prostate cancer metastatic
  6. RADIATION THERAPY [Concomitant]
     Active Substance: RADIATION THERAPY
     Indication: Prostate cancer metastatic

REACTIONS (1)
  - Disease recurrence [Not Recovered/Not Resolved]
